FAERS Safety Report 8619107-8 (Version None)
Quarter: 2012Q3

REPORT INFORMATION
  Report Type: 
  Country: None (occurrence: None)
  Receive Date: 20120824
  Receipt Date: 20120822
  Transmission Date: 20120928
  Serious: Yes (Other)
  Sender: FDA-Public Use
  Company Number: PHHY2012AU072585

PATIENT
  Sex: Male

DRUGS (1)
  1. CLOZARIL [Suspect]
     Dosage: 600 MG
     Route: 048
     Dates: start: 20110802, end: 20120813

REACTIONS (1)
  - GASTROINTESTINAL HAEMORRHAGE [None]
